FAERS Safety Report 11540883 (Version 9)
Quarter: 2016Q3

REPORT INFORMATION
  Report Type: Report from Study
  Country: US (occurrence: US)
  Receive Date: 20150923
  Receipt Date: 20160902
  Transmission Date: 20161109
  Serious: Yes (Other)
  Sender: FDA-Public Use
  Company Number: US-SA-2015SA078750

PATIENT
  Age: 43 Year
  Sex: Male

DRUGS (2)
  1. LEMTRADA [Suspect]
     Active Substance: ALEMTUZUMAB
     Indication: MULTIPLE SCLEROSIS
     Route: 041
     Dates: start: 20150309, end: 20150312
  2. LEMTRADA [Suspect]
     Active Substance: ALEMTUZUMAB
     Indication: MULTIPLE SCLEROSIS
     Route: 041
     Dates: start: 20150315, end: 20150315

REACTIONS (46)
  - Haemorrhage [Unknown]
  - Dizziness [Not Recovered/Not Resolved]
  - Feeling cold [Recovered/Resolved]
  - Autonomic dysreflexia [Not Recovered/Not Resolved]
  - Tremor [Not Recovered/Not Resolved]
  - Ear pain [Unknown]
  - Periarthritis [Unknown]
  - Thyroid disorder [Unknown]
  - Weight decreased [Unknown]
  - Pyrexia [Unknown]
  - Fall [Unknown]
  - Central nervous system lesion [Unknown]
  - Contusion [Not Recovered/Not Resolved]
  - Hyperhidrosis [Not Recovered/Not Resolved]
  - Bladder disorder [Not Recovered/Not Resolved]
  - Nausea [Unknown]
  - Rotator cuff syndrome [Unknown]
  - Balance disorder [Not Recovered/Not Resolved]
  - Laboratory test abnormal [Unknown]
  - Nausea [Not Recovered/Not Resolved]
  - Cyst [Unknown]
  - Headache [Unknown]
  - Dyspepsia [Unknown]
  - Heart rate increased [Unknown]
  - Influenza [Recovered/Resolved]
  - Laceration [Not Recovered/Not Resolved]
  - Fatigue [Unknown]
  - Dyspnoea [Not Recovered/Not Resolved]
  - Heart rate increased [Not Recovered/Not Resolved]
  - Arthritis [Unknown]
  - Abdominal pain upper [Unknown]
  - Chills [Not Recovered/Not Resolved]
  - Eye swelling [Unknown]
  - Rib fracture [Recovered/Resolved]
  - Diabetic complication [Not Recovered/Not Resolved]
  - Blood urine present [Unknown]
  - Nerve injury [Unknown]
  - Respiratory rate increased [Not Recovered/Not Resolved]
  - Eye movement disorder [Not Recovered/Not Resolved]
  - Rash [Unknown]
  - Hyperhidrosis [Unknown]
  - Movement disorder [Not Recovered/Not Resolved]
  - Chest pain [Unknown]
  - Arthralgia [Unknown]
  - Autonomic nervous system imbalance [Unknown]
  - Diarrhoea [Unknown]

NARRATIVE: CASE EVENT DATE: 2015
